FAERS Safety Report 21787010 (Version 2)
Quarter: 2023Q1

REPORT INFORMATION
  Report Type: Spontaneous
  Country: US (occurrence: US)
  Receive Date: 20221228
  Receipt Date: 20230209
  Transmission Date: 20230417
  Serious: Yes (Other)
  Sender: FDA-Public Use
  Company Number: US-SAMSUNG BIOEPIS-SB-2022-32856

PATIENT
  Age: 80 Year
  Sex: Female
  Weight: 59.020 kg

DRUGS (1)
  1. RENFLEXIS [Suspect]
     Active Substance: INFLIXIMAB-ABDA
     Indication: Rheumatoid arthritis
     Route: 042
     Dates: start: 202007

REACTIONS (2)
  - Injection site extravasation [Recovered/Resolved]
  - Poor venous access [Unknown]

NARRATIVE: CASE EVENT DATE: 20221219
